FAERS Safety Report 9792106 (Version 1)
Quarter: 2014Q1

REPORT INFORMATION
  Report Type: Spontaneous
  Country: IL (occurrence: IL)
  Receive Date: 20140102
  Receipt Date: 20140102
  Transmission Date: 20141002
  Serious: Yes (Death, Hospitalization)
  Sender: FDA-Public Use
  Company Number: IL-INCYTE CORPORATION-2013IN003080

PATIENT
  Age: 61 Year
  Sex: Male

DRUGS (1)
  1. JAKAVI [Suspect]
     Indication: MYELOFIBROSIS
     Dosage: 10 MG, BID

REACTIONS (3)
  - Death [Fatal]
  - Pyrexia [Unknown]
  - Confusional state [Unknown]
